FAERS Safety Report 10016683 (Version 2)
Quarter: 2015Q4

REPORT INFORMATION
  Report Type: Spontaneous
  Country: AT (occurrence: AT)
  Receive Date: 20140317
  Receipt Date: 20151209
  Transmission Date: 20160304
  Serious: Yes (Other)
  Sender: FDA-Public Use
  Company Number: AT-BRISTOL-MYERS SQUIBB COMPANY-20545059

PATIENT

DRUGS (1)
  1. EFAVIRENZ [Suspect]
     Active Substance: EFAVIRENZ
     Indication: HIV INFECTION
     Dosage: UNK
     Route: 048

REACTIONS (11)
  - Nephropathy toxic [Unknown]
  - Hypersensitivity [Unknown]
  - Hepatotoxicity [Unknown]
  - Dyslipidaemia [Unknown]
  - Gastrointestinal toxicity [Unknown]
  - Treatment failure [Unknown]
  - Neurotoxicity [Unknown]
  - Virologic failure [Unknown]
  - Drug interaction [Unknown]
  - Toxicity to various agents [Unknown]
  - Maternal exposure during pregnancy [Unknown]
